FAERS Safety Report 11231988 (Version 1)
Quarter: 2015Q3

REPORT INFORMATION
  Report Type: Spontaneous
  Country: EG (occurrence: EG)
  Receive Date: 20150701
  Receipt Date: 20150701
  Transmission Date: 20151125
  Serious: Yes (Hospitalization)
  Sender: FDA-Public Use
  Company Number: EG-NOVOPROD-454640

PATIENT
  Age: 14 Year
  Sex: Female
  Weight: 43 kg

DRUGS (2)
  1. LANTUS [Concomitant]
     Active Substance: INSULIN GLARGINE
     Indication: DIABETES MELLITUS
     Dosage: 20 U, QD (AT 11 PM)
     Route: 058
     Dates: start: 2011
  2. ACTRAPID [Suspect]
     Active Substance: INSULIN HUMAN
     Indication: DIABETES MELLITUS
     Dosage: 20 U, QD (5 UNITS BEFORE BREAKFAST, 10 UNITS BEFORE LUNCH, 5 UNITS BEFORE DINNER)
     Route: 058
     Dates: start: 2011

REACTIONS (1)
  - Diabetic coma [Unknown]

NARRATIVE: CASE EVENT DATE: 2014
